FAERS Safety Report 12908669 (Version 1)
Quarter: 2016Q4

REPORT INFORMATION
  Report Type: Spontaneous
  Country: US (occurrence: US)
  Receive Date: 20161103
  Receipt Date: 20161103
  Transmission Date: 20170207
  Serious: Yes (Hospitalization)
  Sender: FDA-Public Use
  Company Number: US-ASTRAZENECA-2016SF13121

PATIENT
  Sex: Male
  Weight: 92 kg

DRUGS (1)
  1. BRILINTA [Suspect]
     Active Substance: TICAGRELOR
     Indication: STENT PLACEMENT
     Route: 048
     Dates: start: 20161002

REACTIONS (3)
  - Chest pain [Unknown]
  - Drug dose omission [Unknown]
  - Vascular stent occlusion [Unknown]
